FAERS Safety Report 7319638-7 (Version None)
Quarter: 2011Q1

REPORT INFORMATION
  Report Type: 
  Country: None (occurrence: None)
  Receive Date: 20110228
  Receipt Date: 20100624
  Transmission Date: 20110831
  Serious: No
  Sender: FDA-Public Use
  Company Number: A0866933A

PATIENT
  Age: 14 Year
  Sex: Female

DRUGS (3)
  1. MULTIPLE VITAMIN [Concomitant]
  2. LAMICTAL [Suspect]
     Indication: BIPOLAR DISORDER
     Dosage: 75MG PER DAY
     Route: 048
     Dates: start: 20100301, end: 20100624
  3. LEXAPRO [Concomitant]

REACTIONS (2)
  - RASH GENERALISED [None]
  - BLISTER [None]
